FAERS Safety Report 21965719 (Version 1)
Quarter: 2023Q1

REPORT INFORMATION
  Report Type: Spontaneous
  Country: CN (occurrence: None)
  Receive Date: 20230208
  Receipt Date: 20230208
  Transmission Date: 20230417
  Serious: Yes (Other)
  Sender: FDA-Public Use
  Company Number: CN-ROCHE-3279896

PATIENT
  Age: 33 Year
  Sex: Male

DRUGS (30)
  1. MABTHERA [Suspect]
     Active Substance: RITUXIMAB
     Indication: Diffuse large B-cell lymphoma
     Dosage: R-CHOP REGIMEN FOR 6 CYCLES
     Route: 065
     Dates: start: 20160302, end: 20160718
  2. MABTHERA [Suspect]
     Active Substance: RITUXIMAB
     Dosage: R+ POLATUZUMAB VEDOTIN REGIMEN FOR 3 CYCLES
     Route: 065
     Dates: start: 20200325, end: 20200506
  3. MABTHERA [Suspect]
     Active Substance: RITUXIMAB
     Dosage: R+POLATUZUMAB VEDOTIN +ETOPOSIDE REGIMEN FOR 3 CYCLES
     Route: 065
     Dates: start: 20200525, end: 20200708
  4. MABTHERA [Suspect]
     Active Substance: RITUXIMAB
     Dosage: R+ZANUBRUTINIB FOR 2 CYCLES
     Route: 065
     Dates: start: 20210128
  5. POLIVY [Suspect]
     Active Substance: POLATUZUMAB VEDOTIN-PIIQ
     Indication: Diffuse large B-cell lymphoma
     Dosage: R+POLATUZUMAB VEDOTIN REGIMEN FOR 3 CYCLES
     Route: 065
     Dates: start: 20200323, end: 20200506
  6. POLIVY [Suspect]
     Active Substance: POLATUZUMAB VEDOTIN-PIIQ
     Dosage: R+POLATUZUMAB VEDOTIN +ETOPOSIDE REGIMEN FOR 3 CYCLES
     Route: 065
     Dates: start: 20200527
  7. CYCLOPHOSPHAMIDE [Concomitant]
     Active Substance: CYCLOPHOSPHAMIDE
     Indication: Diffuse large B-cell lymphoma
     Dosage: R-CHOP REGIMEN FOR 6 CYCLES
     Route: 065
     Dates: start: 20160302, end: 20160718
  8. CYCLOPHOSPHAMIDE [Concomitant]
     Active Substance: CYCLOPHOSPHAMIDE
     Dosage: MODIFIED BUCY REGIMEN
     Route: 065
     Dates: start: 20161029
  9. CYCLOPHOSPHAMIDE [Concomitant]
     Active Substance: CYCLOPHOSPHAMIDE
     Dosage: DAC+FC REGIMEN
     Route: 065
     Dates: start: 20191122
  10. DOXORUBICIN [Concomitant]
     Active Substance: DOXORUBICIN
     Indication: Diffuse large B-cell lymphoma
     Dosage: R-CHOP REGIMEN FOR 6 CYCLES
     Dates: start: 20160302, end: 20160718
  11. VINCRISTINE [Concomitant]
     Active Substance: VINCRISTINE
     Indication: Diffuse large B-cell lymphoma
     Dosage: R-CHOP REGIMEN FOR 6 CYCLES
     Route: 065
     Dates: start: 20160302, end: 20160718
  12. VINCRISTINE [Concomitant]
     Active Substance: VINCRISTINE
     Dosage: CYTARABINE+METHOTREXATE+ VINCRISTINE+PREDNISONE+ZANUBRUTINIB REGIMEN FOR 3 CYCLES, D1
     Route: 065
     Dates: start: 20201027, end: 20201229
  13. PREDNISONE [Concomitant]
     Active Substance: PREDNISONE
     Indication: Diffuse large B-cell lymphoma
     Dosage: R-CHOP REGIMEN FOR 6 CYCLES
     Route: 065
     Dates: start: 20160302, end: 20160718
  14. PREDNISONE [Concomitant]
     Active Substance: PREDNISONE
     Dosage: CYTARABINE+METHOTREXATE+ VINCRISTINE+PREDNISONE+ZANUBRUTINIB REGIMEN FOR 3 CYCLES, D1-7
     Route: 065
     Dates: start: 20201027, end: 20201229
  15. ETOPOSIDE [Concomitant]
     Active Substance: ETOPOSIDE
     Indication: Diffuse large B-cell lymphoma
     Dosage: ESHAP REGIMEN FOR 2 CYCLES
     Route: 065
     Dates: start: 20160806, end: 20160903
  16. ETOPOSIDE [Concomitant]
     Active Substance: ETOPOSIDE
     Dosage: R+POLATUZUMAB VEDOTIN +ETOPOSIDE REGIMEN FOR 3 CYCLES, D1-5
     Route: 065
     Dates: start: 20200527, end: 20200708
  17. ETOPOSIDE [Concomitant]
     Active Substance: ETOPOSIDE
     Dosage: ETOPOSIDE+SEMUSTINE FOR 2 CYCLES, D1-5
     Route: 048
     Dates: start: 20200730, end: 20200821
  18. METHYLPREDNISOLONE [Concomitant]
     Active Substance: METHYLPREDNISOLONE
     Indication: Diffuse large B-cell lymphoma
     Dosage: ESHAP REGIMEN FOR 2 CYCLES
     Route: 065
     Dates: start: 20160806, end: 20160903
  19. CISPLATIN [Concomitant]
     Active Substance: CISPLATIN
     Indication: Diffuse large B-cell lymphoma
     Dosage: ESHAP REGIMEN FOR 2 CYCLES
     Route: 065
     Dates: start: 20160806, end: 20160903
  20. CYTARABINE [Concomitant]
     Active Substance: CYTARABINE
     Indication: Diffuse large B-cell lymphoma
     Dosage: ESHAP REGIMEN FOR 2 CYCLES
     Route: 065
     Dates: start: 20160806, end: 20160903
  21. CYTARABINE [Concomitant]
     Active Substance: CYTARABINE
     Dosage: CYTARABINE+METHOTREXATE+ VINCRISTINE+PREDNISONE+ZANUBRUTINIB REGIMEN FOR 3 CYCLES, D1
     Route: 065
     Dates: start: 20201027, end: 20201229
  22. BUSULFAN [Concomitant]
     Active Substance: BUSULFAN
     Indication: Diffuse large B-cell lymphoma
     Dosage: MODIFIED BUCY REGIMEN
     Route: 065
     Dates: start: 20161029
  23. LENALIDOMIDE [Concomitant]
     Active Substance: LENALIDOMIDE
     Indication: Diffuse large B-cell lymphoma
     Dates: start: 201910, end: 201910
  24. DECITABINE [Concomitant]
     Active Substance: DECITABINE
     Indication: Diffuse large B-cell lymphoma
     Dosage: DAC+FC REGIMEN
     Route: 065
     Dates: start: 20191122
  25. FLUDARABINE [Concomitant]
     Active Substance: FLUDARABINE PHOSPHATE
     Indication: Diffuse large B-cell lymphoma
     Dosage: DAC+FC REGIMEN
     Route: 065
     Dates: start: 20191122
  26. METHOTREXATE [Concomitant]
     Active Substance: METHOTREXATE
     Indication: Diffuse large B-cell lymphoma
     Dosage: CYTARABINE+METHOTREXATE+ VINCRISTINE+PREDNISONE+ZANUBRUTINIB REGIMEN FOR 3 CYCLES, D1
     Dates: start: 20201027, end: 20201229
  27. ZANUBRUTINIB [Concomitant]
     Active Substance: ZANUBRUTINIB
     Indication: Diffuse large B-cell lymphoma
     Dosage: MONOTHERAPY
     Dates: start: 20200930
  28. ZANUBRUTINIB [Concomitant]
     Active Substance: ZANUBRUTINIB
     Dosage: CYTARABINE+METHOTREXATE+ VINCRISTINE+PREDNISONE+ZANUBRUTINIB REGIMEN FOR 3 CYCLES, D1
     Dates: start: 20201027, end: 20201229
  29. ZANUBRUTINIB [Concomitant]
     Active Substance: ZANUBRUTINIB
     Dosage: R+Z REGIMEN
     Dates: start: 20210128, end: 20210219
  30. SEMUSTINE [Concomitant]
     Active Substance: SEMUSTINE
     Dosage: ETOPOSIDE+SEMUSTINE REGIMEN FOR 2 CYCLES
     Dates: start: 20200730, end: 20200821

REACTIONS (5)
  - Granulocyte count decreased [Unknown]
  - Viral infection [Unknown]
  - Platelet count decreased [Unknown]
  - Erythema [Unknown]
  - Anaemia [Unknown]
